FAERS Safety Report 17137398 (Version 2)
Quarter: 2020Q1

REPORT INFORMATION
  Report Type: Spontaneous
  Country: US (occurrence: US)
  Receive Date: 20191210
  Receipt Date: 20200117
  Transmission Date: 20200409
  Serious: No
  Sender: FDA-Public Use
  Company Number: US-ALKERMES INC.-ALK-2019-006338

PATIENT
  Age: 25 Year
  Sex: Male

DRUGS (1)
  1. ARISTADA [Suspect]
     Active Substance: ARIPIPRAZOLE LAUROXIL
     Indication: BIPOLAR I DISORDER
     Dosage: 882 MG, QMO
     Route: 030
     Dates: start: 20191112

REACTIONS (6)
  - Off label use [Not Recovered/Not Resolved]
  - Energy increased [Not Recovered/Not Resolved]
  - Weight increased [Not Recovered/Not Resolved]
  - Binge eating [Not Recovered/Not Resolved]
  - Impatience [Not Recovered/Not Resolved]
  - Nervousness [Not Recovered/Not Resolved]

NARRATIVE: CASE EVENT DATE: 2019
